FAERS Safety Report 11021144 (Version 1)
Quarter: 2015Q2

REPORT INFORMATION
  Report Type: Spontaneous
  Country: US (occurrence: US)
  Receive Date: 20150413
  Receipt Date: 20150413
  Transmission Date: 20150821
  Serious: Yes (Hospitalization, Other)
  Sender: FDA-Public Use
  Company Number: US-MALLINCKRODT-T201501390

PATIENT
  Age: 40 Year
  Sex: Male
  Weight: 88.44 kg

DRUGS (1)
  1. H.P. ACTHAR [Suspect]
     Active Substance: CORTICOTROPIN
     Indication: NEPHROTIC SYNDROME
     Dosage: 80 U, BIWEEKLY
     Route: 058
     Dates: start: 201409

REACTIONS (10)
  - Asthenia [Unknown]
  - Heart rate increased [Unknown]
  - Gastroenteritis viral [Recovering/Resolving]
  - Rash pruritic [Not Recovered/Not Resolved]
  - Aspiration [Unknown]
  - Dizziness [Unknown]
  - Depressed level of consciousness [Recovering/Resolving]
  - Pneumonia [Unknown]
  - Drug abuse [Unknown]
  - Fatigue [Unknown]

NARRATIVE: CASE EVENT DATE: 201501
